FAERS Safety Report 20757440 (Version 6)
Quarter: 2023Q2

REPORT INFORMATION
  Report Type: Report from Study
  Country: CA (occurrence: CA)
  Receive Date: 20220427
  Receipt Date: 20230404
  Transmission Date: 20230722
  Serious: Yes (Other)
  Sender: FDA-Public Use
  Company Number: CA-BAUSCH-BL-2022-009867

PATIENT
  Age: 33 Year
  Sex: Female

DRUGS (3)
  1. SILIQ [Suspect]
     Active Substance: BRODALUMAB
     Indication: Psoriasis
     Dosage: 210MG/ 1.5 ML, INDUCTION WEEKLY, WEEK 0, 1 AND 2
     Route: 058
     Dates: start: 20220420, end: 20220504
  2. SILIQ [Suspect]
     Active Substance: BRODALUMAB
     Dosage: 210MG/ 1.5 ML, Q 2 WEEKS
     Route: 058
     Dates: start: 2022
  3. SILIQ [Suspect]
     Active Substance: BRODALUMAB
     Dosage: 210MG/ 1.5 ML, Q 2 WEEKS
     Route: 058
     Dates: start: 2023

REACTIONS (7)
  - Abortion spontaneous [Unknown]
  - Syncope [Unknown]
  - Migraine [Unknown]
  - Respiratory tract congestion [Unknown]
  - Psoriasis [Unknown]
  - Maternal exposure during pregnancy [Unknown]
  - Therapy interrupted [Unknown]

NARRATIVE: CASE EVENT DATE: 20220101
